FAERS Safety Report 11767574 (Version 1)
Quarter: 2015Q4

REPORT INFORMATION
  Report Type: Spontaneous
  Country: US (occurrence: US)
  Receive Date: 20151123
  Receipt Date: 20151123
  Transmission Date: 20160304
  Serious: Yes (Other)
  Sender: FDA-Public Use
  Company Number: US-DRREDDYS-USA/USA/15/0053132

PATIENT
  Age: 17 Year
  Sex: Male

DRUGS (1)
  1. ZENATANE [Suspect]
     Active Substance: ISOTRETINOIN
     Indication: ACNE
     Route: 048
     Dates: start: 20150901

REACTIONS (3)
  - Fall [Unknown]
  - Upper limb fracture [Unknown]
  - Wrist fracture [Unknown]

NARRATIVE: CASE EVENT DATE: 20150918
